FAERS Safety Report 4806986-5 (Version None)
Quarter: 2005Q4

REPORT INFORMATION
  Report Type: 
  Country: None (occurrence: None)
  Receive Date: 20051024
  Receipt Date: 20051012
  Transmission Date: 20060501
  Serious: Yes (Disabling, Other)
  Sender: FDA-Public Use
  Company Number: US-JNJFOC-20051002615

PATIENT
  Sex: Male

DRUGS (4)
  1. REMICADE [Suspect]
     Indication: DRUG USE FOR UNKNOWN INDICATION
     Dosage: SPRING AND SUMMER 2004
     Route: 042
     Dates: start: 20040101
  2. VIOXX [Suspect]
  3. VIOXX [Suspect]
  4. COUMADIN [Concomitant]

REACTIONS (3)
  - BLINDNESS [None]
  - CARDIOVASCULAR DISORDER [None]
  - HYPERTENSION [None]
